FAERS Safety Report 4389638-8 (Version None)
Quarter: 2004Q3

REPORT INFORMATION
  Report Type: 
  Country: None (occurrence: None)
  Receive Date: 20040702
  Receipt Date: 20040617
  Transmission Date: 20050211
  Serious: Yes (Disabling)
  Sender: FDA-Public Use
  Company Number: US-MERCK-0406USA01808

PATIENT
  Age: 67 Year
  Sex: Female

DRUGS (3)
  1. FOSAMAX [Suspect]
     Indication: OSTEOPOROSIS
     Route: 048
     Dates: start: 20040614, end: 20040614
  2. SYNTHROID [Concomitant]
     Route: 065
  3. PRINIVIL [Concomitant]
     Route: 048

REACTIONS (1)
  - DYSPEPSIA [None]
